FAERS Safety Report 9700874 (Version 2)
Quarter: 2013Q4

REPORT INFORMATION
  Report Type: Spontaneous
  Country: US (occurrence: US)
  Receive Date: 20131121
  Receipt Date: 20131226
  Transmission Date: 20140711
  Serious: Yes (Other)
  Sender: FDA-Public Use
  Company Number: US-PFIZER INC-2013332063

PATIENT
  Age: 64 Year
  Sex: Female
  Weight: 57.6 kg

DRUGS (11)
  1. LYRICA [Suspect]
     Indication: NEUROPATHY PERIPHERAL
     Dosage: 150 MG, 2X/DAY
     Route: 048
     Dates: start: 201301
  2. LYRICA [Suspect]
     Indication: SPINAL CORD INJURY
  3. MORPHINE [Concomitant]
     Dosage: 3 MG, 3X/DAY
  4. POTASSIUM [Concomitant]
     Dosage: 40 MEQ, 1X/DAY
  5. HYDROCHLOROTHIAZIDE [Concomitant]
     Dosage: 12.5 MG, 1X/DAY
  6. LEVETIRACETAM [Concomitant]
     Dosage: 500 MG, 2X/DAY
  7. FORTEO [Concomitant]
     Indication: OSTEOPOROSIS
     Dosage: UNK
  8. LISINOPRIL [Concomitant]
     Dosage: 20 MG, 1X/DAY
  9. PAROXETINE [Concomitant]
     Dosage: 40 MG, 1X/DAY
  10. BACLOFEN [Concomitant]
     Dosage: 10 MG, 2X/DAY
  11. COLACE [Concomitant]
     Dosage: 100 MG, 2X/DAY

REACTIONS (6)
  - Weight increased [Unknown]
  - Increased appetite [Unknown]
  - Dyspepsia [Unknown]
  - Local swelling [Unknown]
  - Mobility decreased [Unknown]
  - Dysuria [Recovering/Resolving]
